FAERS Safety Report 4893077-0 (Version None)
Quarter: 2005Q4

REPORT INFORMATION
  Report Type: 
  Country: None (occurrence: None)
  Receive Date: 20051223
  Receipt Date: 20051104
  Transmission Date: 20060501
  Serious: Yes (Other)
  Sender: FDA-Public Use
  Company Number: 219009

PATIENT
  Age: 53 Year
  Sex: Female

DRUGS (4)
  1. AVASTIN [Suspect]
     Indication: INFLAMMATORY CARCINOMA OF THE BREAST
     Dosage: 10 MG
     Dates: start: 20041123
  2. ABRAXANE (PACLITAXEL) [Concomitant]
  3. CELEBREX [Concomitant]
  4. NORVASC [Concomitant]

REACTIONS (2)
  - HYPERTENSION [None]
  - IMPAIRED HEALING [None]
